FAERS Safety Report 13833791 (Version 2)
Quarter: 2017Q3

REPORT INFORMATION
  Report Type: Spontaneous
  Country: BR (occurrence: BR)
  Receive Date: 20170804
  Receipt Date: 20170815
  Transmission Date: 20171127
  Serious: Yes (Hospitalization, Other)
  Sender: FDA-Public Use
  Company Number: BR-AMGEN-BRASP2017053481

PATIENT
  Age: 66 Year
  Sex: Female

DRUGS (9)
  1. ENBREL [Suspect]
     Active Substance: ETANERCEPT
     Indication: POLYCHONDRITIS
     Dosage: UNK, 1X/WEEK (EVERY 7 DAYS)
     Route: 065
     Dates: start: 201506, end: 2016
  2. ROSUVASTATIN. [Concomitant]
     Active Substance: ROSUVASTATIN
     Dosage: UNK
  3. AAS [Concomitant]
     Active Substance: ASPIRIN
     Dosage: UNK
  4. ENBREL [Suspect]
     Active Substance: ETANERCEPT
     Dosage: UNK, EVERY 15 DAYS
     Route: 065
     Dates: start: 201703, end: 201705
  5. ENALAPRIL MALEATE. [Concomitant]
     Active Substance: ENALAPRIL MALEATE
     Dosage: UNK
  6. METFORMIN [Concomitant]
     Active Substance: METFORMIN HYDROCHLORIDE
     Dosage: UNK
  7. ENBREL [Suspect]
     Active Substance: ETANERCEPT
     Indication: RHEUMATOID ARTHRITIS
     Dosage: UNK, EVERY 10 DAYS
     Route: 065
     Dates: start: 2016, end: 201703
  8. SELOZOK [Concomitant]
     Active Substance: METOPROLOL SUCCINATE
     Dosage: UNK
  9. CIPROFIBRATE [Concomitant]
     Active Substance: CIPROFIBRATE
     Dosage: UNK

REACTIONS (5)
  - Urinary tract infection [Recovered/Resolved]
  - Decreased immune responsiveness [Not Recovered/Not Resolved]
  - Bladder cancer [Unknown]
  - Fear [Not Recovered/Not Resolved]
  - Product use issue [Recovered/Resolved]

NARRATIVE: CASE EVENT DATE: 201506
